FAERS Safety Report 4914097-3 (Version None)
Quarter: 2006Q1

REPORT INFORMATION
  Report Type: 
  Country: None (occurrence: None)
  Receive Date: 20060213
  Receipt Date: 20060203
  Transmission Date: 20060701
  Serious: Yes (Other)
  Sender: FDA-Public Use
  Company Number: 200610515GDS

PATIENT
  Age: 49 Year
  Sex: Female

DRUGS (6)
  1. CIPROFLOXACIN [Suspect]
     Dosage: 500 MG, BID, ORAL
     Route: 048
  2. CEFADROXIL [Concomitant]
  3. CLINDAMYCIN [Concomitant]
  4. GENTAMICIN [Concomitant]
  5. PREMARIN [Concomitant]
  6. STEROIDS NOS [Concomitant]

REACTIONS (7)
  - BLOOD CREATININE INCREASED [None]
  - DEHYDRATION [None]
  - HEADACHE [None]
  - NAUSEA [None]
  - NEPHRITIS INTERSTITIAL [None]
  - PYREXIA [None]
  - VOMITING [None]
